FAERS Safety Report 9676130 (Version 1)
Quarter: 2013Q4

REPORT INFORMATION
  Report Type: Spontaneous
  Country: US (occurrence: US)
  Receive Date: 20131107
  Receipt Date: 20131107
  Transmission Date: 20140711
  Serious: Yes (Other)
  Sender: FDA-Public Use
  Company Number: US-ACTAVIS-2013-19806

PATIENT
  Age: 61 Year
  Sex: Female

DRUGS (4)
  1. FIORINAL 50/325/40 (WATSON LABORATORIES) [Suspect]
     Indication: PRODUCT USED FOR UNKNOWN INDICATION
     Dosage: UNK
     Route: 065
  2. ASPIRIN (UNKNOWN) [Interacting]
     Indication: ANTIPLATELET THERAPY
     Dosage: UNK
     Route: 065
  3. PLAVIX [Interacting]
     Indication: ANTIPLATELET THERAPY
     Dosage: UNK
     Route: 065
  4. PRISTIQ [Interacting]
     Indication: DEPRESSION
     Dosage: UNK
     Route: 065

REACTIONS (3)
  - Coagulopathy [Unknown]
  - Spontaneous haematoma [Unknown]
  - Drug interaction [Unknown]
